FAERS Safety Report 6441580-4 (Version None)
Quarter: 2009Q4

REPORT INFORMATION
  Report Type: 
  Country: None (occurrence: None)
  Receive Date: 20091116
  Receipt Date: 20091105
  Transmission Date: 20100525
  Serious: No
  Sender: FDA-Public Use
  Company Number: US-JNJFOC-20091102481

PATIENT
  Sex: Female
  Weight: 79.38 kg

DRUGS (1)
  1. DURAGESIC-100 [Suspect]
     Indication: BACK PAIN
     Dosage: 2 PATCHES OF 100 UG/HR
     Route: 062
     Dates: start: 20091001

REACTIONS (3)
  - DRUG EFFECT DECREASED [None]
  - INCORRECT DRUG ADMINISTRATION RATE [None]
  - NAUSEA [None]
